FAERS Safety Report 9949801 (Version 1)
Quarter: 2014Q1

REPORT INFORMATION
  Report Type: Report from Study
  Country: US (occurrence: US)
  Receive Date: 20140304
  Receipt Date: 20140304
  Transmission Date: 20141002
  Serious: No
  Sender: FDA-Public Use
  Company Number: US-ABBVIE-13P-163-1068834-00

PATIENT
  Age: 68 Year
  Sex: Male

DRUGS (13)
  1. HUMIRA [Suspect]
     Indication: PSORIASIS
     Dates: start: 201301
  2. FUROSAMIDE [Concomitant]
     Indication: CHRONIC OBSTRUCTIVE PULMONARY DISEASE
     Dosage: 80MG IN THE AM AND 80MG IN THE PM
  3. ISOSORBIDE [Concomitant]
     Indication: VASODILATATION
  4. POTASSIUM [Concomitant]
     Indication: PRODUCT USED FOR UNKNOWN INDICATION
  5. SYMBICORT [Concomitant]
     Indication: CHRONIC OBSTRUCTIVE PULMONARY DISEASE
     Dosage: 160/4.5, 2 PUFFS, TWICE DAILY
  6. SPIRIVA [Concomitant]
     Indication: CHRONIC OBSTRUCTIVE PULMONARY DISEASE
     Dosage: INHALER, ONCE DAILY, IN THE AM
  7. VYTORIN [Concomitant]
     Indication: BLOOD CHOLESTEROL
     Dosage: 10/40, ONCE DAILY IN THE PM
  8. NITRO [Concomitant]
     Indication: CHEST PAIN
     Dosage: HAD NOT USED IT
  9. ASA [Concomitant]
     Indication: PROPHYLAXIS
  10. VITAMIN D3 WITH VITAMIN C [Concomitant]
     Indication: VITAMIN SUPPLEMENTATION
  11. VITAMIN B COMPLEX PLUS C [Concomitant]
     Indication: VITAMIN SUPPLEMENTATION
     Dosage: DAILY
  12. IPRATROPIUM BROMIDE 0.5 WITH ALBUTEROL SULFATE [Concomitant]
     Indication: CHRONIC OBSTRUCTIVE PULMONARY DISEASE
     Dosage: NEBULIZER, 3 TIMES DAILY
  13. PROAIR HFA [Concomitant]
     Indication: CHRONIC OBSTRUCTIVE PULMONARY DISEASE

REACTIONS (4)
  - Urine flow decreased [Not Recovered/Not Resolved]
  - Breast tenderness [Not Recovered/Not Resolved]
  - Sneezing [Not Recovered/Not Resolved]
  - Lacrimation increased [Not Recovered/Not Resolved]
